FAERS Safety Report 4569396-4 (Version None)
Quarter: 2005Q1

REPORT INFORMATION
  Report Type: 
  Country: None (occurrence: None)
  Receive Date: 20050203
  Receipt Date: 20050126
  Transmission Date: 20050727
  Serious: Yes (Hospitalization)
  Sender: FDA-Public Use
  Company Number: FR-ROCHE-393743

PATIENT
  Age: 15 Year
  Sex: Female
  Weight: 70 kg

DRUGS (11)
  1. ROCEPHIN [Suspect]
     Indication: DRUG USE FOR UNKNOWN INDICATION
     Dosage: STRENGTH 2G/40ML.
     Route: 042
     Dates: end: 20050105
  2. AMBISOME [Suspect]
     Route: 042
     Dates: start: 20040906, end: 20041209
  3. VANCOMYCIN [Suspect]
     Indication: DRUG USE FOR UNKNOWN INDICATION
     Route: 042
     Dates: start: 20041014, end: 20041021
  4. TARGOCID [Concomitant]
     Dates: end: 20040815
  5. NEBCIN [Concomitant]
     Dates: end: 20040815
  6. ORACILLINE [Concomitant]
     Dates: start: 20040815
  7. BRISTOPEN [Concomitant]
  8. TEGELINE [Concomitant]
  9. CORTICOTHERAPY [Concomitant]
     Dates: end: 20041203
  10. CYCLOSPORINE [Concomitant]
     Dosage: TO BETWEEN 200 TO 250.
     Dates: start: 20040624
  11. PENTACARINAT [Concomitant]

REACTIONS (3)
  - CREATININE RENAL CLEARANCE DECREASED [None]
  - GLOMERULAR FILTRATION RATE ABNORMAL [None]
  - RENAL FAILURE [None]
